FAERS Safety Report 20778452 (Version 9)
Quarter: 2024Q1

REPORT INFORMATION
  Report Type: Spontaneous
  Country: US (occurrence: US)
  Receive Date: 20220503
  Receipt Date: 20240112
  Transmission Date: 20240410
  Serious: No
  Sender: FDA-Public Use
  Company Number: US-PFIZER INC-202101444981

PATIENT
  Age: 79 Year
  Sex: Female

DRUGS (8)
  1. RETACRIT [Suspect]
     Active Substance: EPOETIN ALFA-EPBX
     Indication: Nephrogenic anaemia
     Dosage: 11000 IU, WEEKLY
  2. RETACRIT [Suspect]
     Active Substance: EPOETIN ALFA-EPBX
     Indication: Chronic kidney disease
     Dosage: 14000 IU, WEEKLY
  3. RETACRIT [Suspect]
     Active Substance: EPOETIN ALFA-EPBX
     Dosage: 20,000 UNITS/ML, 0.9 ML (18000 IU), WEEKLY QS 4 WEEKS
     Route: 058
  4. RETACRIT [Suspect]
     Active Substance: EPOETIN ALFA-EPBX
     Dosage: 20,000 UNITS/2 ML, 2.5 ML (25000 IU), WEEKLY
     Route: 058
  5. RETACRIT [Suspect]
     Active Substance: EPOETIN ALFA-EPBX
     Dosage: 10,000 UNITS/ML, 2 ML (20000 IU), WEEKLY
     Route: 058
  6. RETACRIT [Suspect]
     Active Substance: EPOETIN ALFA-EPBX
     Dosage: 10,000 UNITS/ML, 2.5 ML (25000 IU), WEEKLY
     Route: 058
     Dates: start: 20230406
  7. RETACRIT [Suspect]
     Active Substance: EPOETIN ALFA-EPBX
     Dosage: 40000 IU
  8. RETACRIT [Suspect]
     Active Substance: EPOETIN ALFA-EPBX
     Dosage: 10,000 UNITS/ML, 2.5 ML (25000 IU), WEEKLY/ INJECT 2.5 MLS UNDER THE SKIN ONCE A WEEK
     Route: 058

REACTIONS (2)
  - Wrong dose [Unknown]
  - Haemoglobin decreased [Unknown]
